FAERS Safety Report 6446999-3 (Version None)
Quarter: 2009Q4

REPORT INFORMATION
  Report Type: 
  Country: None (occurrence: None)
  Receive Date: 20091119
  Receipt Date: 20091112
  Transmission Date: 20100525
  Serious: Yes (Hospitalization)
  Sender: FDA-Public Use
  Company Number: CH-BRISTOL-MYERS SQUIBB COMPANY-14854921

PATIENT
  Age: 60 Year
  Sex: Male
  Weight: 40 kg

DRUGS (10)
  1. REYATAZ [Suspect]
     Indication: HIV INFECTION
     Route: 048
     Dates: start: 20060808
  2. STOCRIN [Suspect]
     Indication: HIV INFECTION
     Route: 048
     Dates: start: 20091012
  3. VIREAD [Suspect]
     Indication: HIV INFECTION
     Route: 048
     Dates: start: 20060808, end: 20070704
  4. TRUVADA [Suspect]
     Indication: HIV INFECTION
     Route: 048
     Dates: start: 20070704, end: 20090930
  5. INVIRASE [Suspect]
     Indication: HIV INFECTION
     Route: 048
     Dates: start: 20060808
  6. NORVIR [Suspect]
     Indication: HIV INFECTION
     Route: 048
     Dates: start: 20060808
  7. LAMIVUDINE [Suspect]
     Indication: HIV INFECTION
     Route: 048
     Dates: start: 20091001
  8. ZIAGEN [Suspect]
     Indication: HIV INFECTION
     Dates: start: 20091001, end: 20091010
  9. PHOSPHORUS-32 [Concomitant]
     Indication: PHOSPHORUS METABOLISM DISORDER
     Route: 048
     Dates: start: 20090928
  10. POTASSIUM CHLORIDE [Concomitant]
     Indication: HYPOKALAEMIA
     Route: 048

REACTIONS (7)
  - FANCONI SYNDROME ACQUIRED [None]
  - GLYCOSURIA [None]
  - HYPOKALAEMIA [None]
  - HYPOPHOSPHATAEMIA [None]
  - NEPHROCALCINOSIS [None]
  - PROTEINURIA [None]
  - RENAL FAILURE CHRONIC [None]
